FAERS Safety Report 18282146 (Version 7)
Quarter: 2022Q2

REPORT INFORMATION
  Report Type: Report from Study
  Country: US (occurrence: None)
  Receive Date: 20200918
  Receipt Date: 20220516
  Transmission Date: 20220721
  Serious: Yes (Hospitalization)
  Sender: FDA-Public Use
  Company Number: US-EISAI MEDICAL RESEARCH-EC-2020-079518

PATIENT
  Age: 57 Year
  Sex: Female

DRUGS (12)
  1. LENVIMA [Suspect]
     Active Substance: LENVATINIB
     Indication: Thyroid cancer
     Route: 048
     Dates: start: 20200811, end: 20200909
  2. LENVIMA [Suspect]
     Active Substance: LENVATINIB
     Route: 048
     Dates: start: 20201110, end: 20201130
  3. LENVIMA [Suspect]
     Active Substance: LENVATINIB
     Route: 048
     Dates: start: 20210110, end: 20210128
  4. LENVIMA [Suspect]
     Active Substance: LENVATINIB
     Route: 048
     Dates: start: 2021, end: 202105
  5. LENVIMA [Suspect]
     Active Substance: LENVATINIB
     Route: 048
     Dates: start: 2021, end: 20210710
  6. LENVIMA [Suspect]
     Active Substance: LENVATINIB
     Route: 048
     Dates: start: 20211010, end: 20211126
  7. LENVIMA [Suspect]
     Active Substance: LENVATINIB
     Dosage: 3 MISSED DOSES DUE TO FORGETTING
     Route: 048
     Dates: start: 20211202, end: 202201
  8. LENVIMA [Suspect]
     Active Substance: LENVATINIB
     Dosage: 7 MISSED DOSES DUE TO DENTAL PROCEDURE.
     Route: 048
     Dates: start: 202201, end: 20220228
  9. LENVIMA [Suspect]
     Active Substance: LENVATINIB
     Route: 048
     Dates: start: 20220301
  10. VITAMINS [Concomitant]
     Active Substance: VITAMINS
  11. LEVOTHYROXINE [Concomitant]
     Active Substance: LEVOTHYROXINE
  12. THYROGEN [Concomitant]
     Active Substance: THYROTROPIN ALFA

REACTIONS (42)
  - Post procedural haemorrhage [Not Recovered/Not Resolved]
  - Blood pressure increased [Recovering/Resolving]
  - Nausea [Not Recovered/Not Resolved]
  - Headache [Unknown]
  - Cough [Not Recovered/Not Resolved]
  - Anxiety [Not Recovered/Not Resolved]
  - Nervousness [Not Recovered/Not Resolved]
  - Dizziness [Not Recovered/Not Resolved]
  - Malaise [Unknown]
  - Haematochezia [Not Recovered/Not Resolved]
  - Myalgia [Not Recovered/Not Resolved]
  - Plicated tongue [Not Recovered/Not Resolved]
  - Vision blurred [Unknown]
  - Glossodynia [Recovered/Resolved]
  - Tremor [Not Recovered/Not Resolved]
  - Weight decreased [Not Recovered/Not Resolved]
  - Confusional state [Unknown]
  - Depression [Not Recovered/Not Resolved]
  - Swollen tongue [Unknown]
  - Fatigue [Not Recovered/Not Resolved]
  - Agitation [Not Recovered/Not Resolved]
  - Alopecia [Not Recovered/Not Resolved]
  - Heart rate increased [Recovered/Resolved]
  - Muscle tightness [Unknown]
  - Palpitations [Unknown]
  - Off label use [Not Recovered/Not Resolved]
  - Asthenia [Unknown]
  - Somnolence [Recovering/Resolving]
  - Malignant neoplasm progression [Unknown]
  - Decreased activity [Not Recovered/Not Resolved]
  - Eyelid disorder [Unknown]
  - Dyspepsia [Unknown]
  - Limb discomfort [Unknown]
  - Tracheal disorder [Unknown]
  - Toothache [Unknown]
  - Tooth disorder [Unknown]
  - Tooth fracture [Unknown]
  - Stomatitis [Not Recovered/Not Resolved]
  - Dry skin [Not Recovered/Not Resolved]
  - Dental caries [Unknown]
  - Visual impairment [Not Recovered/Not Resolved]
  - Muscular weakness [Unknown]

NARRATIVE: CASE EVENT DATE: 20200101
